FAERS Safety Report 6883143-2 (Version None)
Quarter: 2010Q3

REPORT INFORMATION
  Report Type: 
  Country: None (occurrence: None)
  Receive Date: 20100729
  Receipt Date: 20100716
  Transmission Date: 20110219
  Serious: No
  Sender: FDA-Public Use
  Company Number: US-B.I. PHARMACEUTICALS,INC./RIDGEFIELD-2010-BP-08314BP

PATIENT
  Sex: Male

DRUGS (4)
  1. ZANTAC 150 [Suspect]
     Route: 048
     Dates: start: 20080101
  2. ROXICODONE [Concomitant]
     Indication: BACK PAIN
  3. METHADONE HCL [Concomitant]
     Indication: BACK PAIN
  4. XANAX [Concomitant]
     Indication: INSOMNIA

REACTIONS (1)
  - DRUG SCREEN FALSE POSITIVE [None]
